FAERS Safety Report 8359436-9 (Version None)
Quarter: 2012Q2

REPORT INFORMATION
  Report Type: 
  Country: None (occurrence: None)
  Receive Date: 20120515
  Receipt Date: 20120507
  Transmission Date: 20120825
  Serious: Yes (Other)
  Sender: FDA-Public Use
  Company Number: US-BAYER-2012-002897

PATIENT
  Age: 16 Year
  Sex: Female
  Weight: 77.098 kg

DRUGS (5)
  1. YAZ [Suspect]
     Dosage: UNK
     Route: 048
     Dates: start: 20080401, end: 20100101
  2. TYLENOL COLD [Concomitant]
  3. NASONEX [Concomitant]
     Indication: SEASONAL ALLERGY
  4. METFORMIN HCL [Concomitant]
     Indication: BLOOD INSULIN ABNORMAL
     Dosage: 500 MG, BID
  5. LORTAB [Concomitant]

REACTIONS (3)
  - CHOLECYSTITIS [None]
  - CHOLELITHIASIS [None]
  - PAIN [None]
